FAERS Safety Report 13171771 (Version 6)
Quarter: 2017Q4

REPORT INFORMATION
  Report Type: Spontaneous
  Country: US (occurrence: US)
  Receive Date: 20170201
  Receipt Date: 20171006
  Transmission Date: 20180320
  Serious: No
  Sender: FDA-Public Use
  Company Number: US-PFIZER INC-2017039088

PATIENT
  Age: 65 Year
  Sex: Female
  Weight: 78.93 kg

DRUGS (12)
  1. IBRANCE [Suspect]
     Active Substance: PALBOCICLIB
     Indication: BREAST CANCER STAGE IV
     Dosage: 125 MG, CYCLIC (FOR 21 DAYS THEN TAKE 7 DAYS OFF EVERY 28 DAYS)
     Route: 048
     Dates: start: 20170105
  2. LOSARTAN/HCTZ [Concomitant]
     Active Substance: HYDROCHLOROTHIAZIDE\LOSARTAN
     Indication: HYPERTENSION
     Dosage: 100/12.5 MG, ONCE A DAY
     Route: 048
  3. COENZYME Q10 [Concomitant]
     Active Substance: UBIDECARENONE
     Indication: SUPPLEMENTATION THERAPY
     Dosage: 200 MG, ONCE A DAY
     Route: 048
  4. IBRANCE [Suspect]
     Active Substance: PALBOCICLIB
     Dosage: 125 MG, CYCLIC (ONCE DAILY FOR 21 DAYS THEN OFF FOR 7 DAYS)
     Route: 048
     Dates: start: 201701
  5. SPLEEN [Concomitant]
     Indication: SUPPLEMENTATION THERAPY
     Dosage: 1 CAPSULE, ONCE A DAY
     Route: 048
  6. LIALDA [Concomitant]
     Active Substance: MESALAMINE
     Indication: CROHN^S DISEASE
     Dosage: 4 TABLETS, ONCE A DAY
     Route: 048
  7. LIVER CARE [Concomitant]
     Indication: SUPPLEMENTATION THERAPY
     Dosage: 1 CAPSULE, ONCE A DAY
     Route: 048
  8. VITAMIN D [Concomitant]
     Active Substance: CHOLECALCIFEROL
     Indication: SUPPLEMENTATION THERAPY
     Dosage: 5000 IU (1 TABLET), DAILY
  9. PROBIOTIC [Concomitant]
     Active Substance: PROBIOTICS NOS
     Indication: SUPPLEMENTATION THERAPY
     Dosage: 1 CAPSULE, ONCE A DAY
     Route: 048
  10. IBRANCE [Suspect]
     Active Substance: PALBOCICLIB
     Dosage: 125 MG, CYCLIC (21 DAYS ON/ 7 DAYS OFF )
     Route: 048
     Dates: start: 20170124
  11. FASLODEX [Concomitant]
     Active Substance: FULVESTRANT
     Dosage: UNK
  12. IBRANCE [Suspect]
     Active Substance: PALBOCICLIB
     Dosage: 125 MG, CYCLIC (DAILY FOR 21 DAYS ON AND 7 DAYS OFF)
     Route: 048
     Dates: start: 20170109

REACTIONS (6)
  - Frequent bowel movements [Unknown]
  - Glossodynia [Unknown]
  - Disturbance in attention [Unknown]
  - Lip pain [Unknown]
  - Dry mouth [Unknown]
  - Memory impairment [Not Recovered/Not Resolved]

NARRATIVE: CASE EVENT DATE: 20170124
